FAERS Safety Report 8845654 (Version 1)
Quarter: 2012Q4

REPORT INFORMATION
  Report Type: 
  Country: US (occurrence: US)
  Receive Date: 20121017
  Receipt Date: 20121017
  Transmission Date: 20130627
  Serious: Yes (Other)
  Sender: FDA-Public Use
  Company Number: US-ROCHE-1113631

PATIENT
  Sex: Male

DRUGS (4)
  1. NUTROPIN AQ [Suspect]
     Indication: HYPOPITUITARISM
     Dosage: 3.2
     Route: 050
     Dates: start: 199803
  2. DDAVP [Concomitant]
  3. CORTEF [Concomitant]
     Route: 065
  4. SYNTHROID [Concomitant]
     Route: 065

REACTIONS (5)
  - Blindness [Unknown]
  - Vomiting [Unknown]
  - Bone pain [Unknown]
  - Fatigue [Unknown]
  - Headache [Unknown]
